FAERS Safety Report 8130249-6 (Version None)
Quarter: 2012Q1

REPORT INFORMATION
  Report Type: 
  Country: None (occurrence: None)
  Receive Date: 20120210
  Receipt Date: 20120203
  Transmission Date: 20120608
  Serious: Yes (Other)
  Sender: FDA-Public Use
  Company Number: PHHY2012FR009839

PATIENT
  Age: 80 Year
  Sex: Male

DRUGS (1)
  1. EXELON [Suspect]
     Dosage: 9.5 MG, QD
     Route: 062

REACTIONS (1)
  - CYTOLYTIC HEPATITIS [None]
